FAERS Safety Report 9522836 (Version 3)
Quarter: 2013Q4

REPORT INFORMATION
  Report Type: Report from Study
  Country: CA (occurrence: CA)
  Receive Date: 20130913
  Receipt Date: 20131106
  Transmission Date: 20140711
  Serious: Yes (Other)
  Sender: FDA-Public Use
  Company Number: CA-ROCHE-1274213

PATIENT
  Sex: Female
  Weight: 59 kg

DRUGS (3)
  1. ACTEMRA [Suspect]
     Indication: RHEUMATOID ARTHRITIS
     Dosage: LAST DOSE PRIOR TO SAE:07/AUG/2013
     Route: 042
     Dates: start: 20111213
  2. TRAMADOL [Concomitant]
  3. HYDROXYQUINOLINE [Concomitant]

REACTIONS (1)
  - Foot fracture [Recovering/Resolving]
